FAERS Safety Report 6157882-5 (Version None)
Quarter: 2009Q2

REPORT INFORMATION
  Report Type: 
  Country: None (occurrence: None)
  Receive Date: 20090416
  Receipt Date: 20070921
  Transmission Date: 20091009
  Serious: Yes (Death, Hospitalization, Other)
  Sender: FDA-Public Use
  Company Number: US-ASTRAZENECA-2006UW21678

PATIENT
  Age: 508 Month
  Sex: Female
  Weight: 79.4 kg

DRUGS (34)
  1. SEROQUEL [Suspect]
     Indication: BIPOLAR DISORDER
     Dosage: 100 MG, 25 MG
     Route: 048
     Dates: start: 20000201, end: 20050101
  2. SEROQUEL [Suspect]
     Indication: DEPRESSION
     Dosage: 100 MG, 25 MG
     Route: 048
     Dates: start: 20000201, end: 20050101
  3. SEROQUEL [Suspect]
     Indication: ANXIETY
     Dosage: 100 MG, 25 MG
     Route: 048
     Dates: start: 20000201, end: 20050101
  4. SEROQUEL [Suspect]
     Dosage: 25MG - 300 MG
     Route: 048
     Dates: start: 20000201
  5. SEROQUEL [Suspect]
     Dosage: 25MG - 300 MG
     Route: 048
     Dates: start: 20000201
  6. SEROQUEL [Suspect]
     Dosage: 25MG - 300 MG
     Route: 048
     Dates: start: 20000201
  7. VASOTEC [Concomitant]
  8. TRICOR [Concomitant]
  9. TIAZAC [Concomitant]
  10. LASIX [Concomitant]
  11. TEGRETOL [Concomitant]
  12. PAXIL [Concomitant]
  13. NEURONTIN [Concomitant]
  14. XANAX [Concomitant]
  15. DILAUDID [Concomitant]
  16. ESTRADIOL [Concomitant]
  17. KEFLEX [Concomitant]
  18. AMOXICILLIN [Concomitant]
  19. ATARAX [Concomitant]
  20. CYMBALTA [Concomitant]
  21. KLOR-CON [Concomitant]
  22. HUMOLOG-R [Concomitant]
  23. SOMA [Concomitant]
  24. TYLENOL W/ CODEINE [Concomitant]
  25. ZANAFLEX [Concomitant]
  26. PHENARGAN [Concomitant]
  27. FLEXERIL [Concomitant]
  28. DEMEROL [Concomitant]
  29. CRESTOR [Concomitant]
  30. MACROBID [Concomitant]
  31. GLUCOPHAGE [Concomitant]
  32. MYCELEX [Concomitant]
  33. DEPAKOTE [Concomitant]
  34. WELLBUTRIN [Concomitant]

REACTIONS (19)
  - ABDOMINAL PAIN [None]
  - BACK PAIN [None]
  - BLOOD GLUCOSE INCREASED [None]
  - COUGH [None]
  - CYST [None]
  - DEATH [None]
  - DIABETES MELLITUS [None]
  - INSOMNIA [None]
  - LOSS OF LIBIDO [None]
  - LUMBAR SPINAL STENOSIS [None]
  - MAJOR DEPRESSION [None]
  - MIGRAINE [None]
  - MUSCULAR WEAKNESS [None]
  - NECK PAIN [None]
  - PAIN IN EXTREMITY [None]
  - PANCREATITIS [None]
  - PSYCHOTIC DISORDER [None]
  - PYREXIA [None]
  - TOOTHACHE [None]
